FAERS Safety Report 10186324 (Version 3)
Quarter: 2014Q2

REPORT INFORMATION
  Report Type: Spontaneous
  Country: US (occurrence: US)
  Receive Date: 20140521
  Receipt Date: 20140612
  Transmission Date: 20141212
  Serious: Yes (Death, Hospitalization, Other)
  Sender: FDA-Public Use
  Company Number: US-GILEAD-2014-0103033

PATIENT
  Sex: Male

DRUGS (1)
  1. LETAIRIS [Suspect]
     Indication: PRODUCT USED FOR UNKNOWN INDICATION
     Dosage: 10 MG, UNK
     Route: 065
     Dates: start: 20110331

REACTIONS (14)
  - Death [Fatal]
  - Pain in jaw [Unknown]
  - Decreased appetite [Unknown]
  - Renal failure [Unknown]
  - Cardiac failure [Unknown]
  - Nausea [Unknown]
  - Pain in extremity [Unknown]
  - Cough [Unknown]
  - Testicular oedema [Unknown]
  - Headache [Unknown]
  - Abdominal pain upper [Unknown]
  - Palpitations [Unknown]
  - Flushing [Unknown]
  - Oedema [Unknown]
